FAERS Safety Report 4811698-8 (Version None)
Quarter: 2005Q4

REPORT INFORMATION
  Report Type: 
  Country: None (occurrence: None)
  Receive Date: 20051025
  Receipt Date: 20051013
  Transmission Date: 20060501
  Serious: Yes (Death)
  Sender: FDA-Public Use
  Company Number: S05-FRA-01641-01

PATIENT
  Age: 74 Year
  Sex: Female

DRUGS (3)
  1. CITALOPRAM HYDROBROMIDE [Suspect]
     Indication: DEPRESSION
     Dosage: 20 MG BID PO
     Route: 048
     Dates: start: 20050419, end: 20050421
  2. CITALOPRAM HYDROBROMIDE [Suspect]
     Indication: DEPRESSION
     Dosage: 20 MG QD PO
     Route: 048
     Dates: start: 20050325, end: 20050418
  3. LEXOMIL (BROMAZEPAM) [Concomitant]

REACTIONS (1)
  - COMPLETED SUICIDE [None]
